FAERS Safety Report 10745657 (Version 1)
Quarter: 2015Q1

REPORT INFORMATION
  Report Type: Spontaneous
  Country: US (occurrence: None)
  Receive Date: 20150127
  Receipt Date: 20150127
  Transmission Date: 20150721
  Serious: Yes (Other)
  Sender: FDA-Public Use
  Company Number: None

PATIENT
  Age: 75 Year
  Sex: Male
  Weight: 77.11 kg

DRUGS (1)
  1. ATORVASTATIN 20 MG SANDOZ [Suspect]
     Active Substance: ATORVASTATIN
     Indication: BLOOD CHOLESTEROL
     Route: 048
     Dates: end: 20141028

REACTIONS (4)
  - Alanine aminotransferase increased [None]
  - Product substitution issue [None]
  - Blood alkaline phosphatase increased [None]
  - Product quality issue [None]
